FAERS Safety Report 7392130-X (Version None)
Quarter: 2011Q2

REPORT INFORMATION
  Report Type: 
  Country: None (occurrence: None)
  Receive Date: 20110404
  Receipt Date: 20110325
  Transmission Date: 20111010
  Serious: Yes (Hospitalization)
  Sender: FDA-Public Use
  Company Number: A0898685A

PATIENT
  Age: 64 Year
  Sex: Female

DRUGS (9)
  1. METFORMIN HCL [Concomitant]
  2. PREVACID [Concomitant]
  3. AVANDIA [Suspect]
     Dosage: 4MG PER DAY
     Route: 048
     Dates: end: 20060607
  4. TOPROL-XL [Concomitant]
  5. AVANDAMET [Suspect]
     Route: 048
     Dates: start: 20050406, end: 20050506
  6. SYNTHROID [Concomitant]
  7. DIOVAN [Concomitant]
  8. ZOCOR [Concomitant]
  9. ALBUTEROL [Concomitant]

REACTIONS (3)
  - HYPERTENSIVE CRISIS [None]
  - CARDIAC FAILURE CONGESTIVE [None]
  - ACUTE PULMONARY OEDEMA [None]
